FAERS Safety Report 5116577-7 (Version None)
Quarter: 2006Q3

REPORT INFORMATION
  Report Type: 
  Country: None (occurrence: None)
  Receive Date: 20060928
  Receipt Date: 20060921
  Transmission Date: 20061208
  Serious: Yes (Other)
  Sender: FDA-Public Use
  Company Number: FR-BRISTOL-MYERS SQUIBB COMPANY-13519327

PATIENT
  Age: 65 Year
  Sex: Female

DRUGS (4)
  1. ABILIFY [Suspect]
     Indication: DELUSION
     Route: 048
     Dates: start: 20060301
  2. ABILIFY [Suspect]
     Indication: HALLUCINATION
     Route: 048
     Dates: start: 20060301
  3. PRAZEPAM [Concomitant]
  4. IMOVANE [Concomitant]

REACTIONS (1)
  - PANCYTOPENIA [None]
